FAERS Safety Report 4701126-5 (Version None)
Quarter: 2005Q2

REPORT INFORMATION
  Report Type: 
  Country: None (occurrence: None)
  Receive Date: 20050628
  Receipt Date: 20050623
  Transmission Date: 20051028
  Serious: Yes (Hospitalization)
  Sender: FDA-Public Use
  Company Number: 167

PATIENT
  Age: 59 Year
  Sex: Female
  Weight: 55 kg

DRUGS (6)
  1. MELPHALAN [Suspect]
     Indication: MULTIPLE MYELOMA
     Dosage: 240MG SINGLE DOSE
     Route: 042
     Dates: start: 20041212, end: 20041212
  2. THALIDOMIDE [Suspect]
     Indication: MULTIPLE MYELOMA
     Route: 048
     Dates: end: 20040208
  3. ACYCLOVIR [Concomitant]
     Indication: VIRAL INFECTION
     Route: 048
     Dates: start: 20050101
  4. VITAMINS [Concomitant]
     Indication: NUTRITIONAL SUPPORT
     Route: 048
  5. PREMARIN [Concomitant]
     Indication: HORMONE REPLACEMENT THERAPY
     Route: 048
     Dates: start: 20050101
  6. FOLIC ACID [Concomitant]
     Indication: NUTRITIONAL SUPPORT
     Route: 048
     Dates: start: 20050101

REACTIONS (4)
  - CONTUSION [None]
  - FRACTURED SACRUM [None]
  - NEUROPATHY PERIPHERAL [None]
  - SYNCOPE [None]
